FAERS Safety Report 5404597-4 (Version None)
Quarter: 2007Q3

REPORT INFORMATION
  Report Type: 
  Country: None (occurrence: None)
  Receive Date: 20070802
  Receipt Date: 20070727
  Transmission Date: 20080115
  Serious: Yes (Hospitalization, Disabling)
  Sender: FDA-Public Use
  Company Number: JP-GENENTECH-244453

PATIENT
  Sex: Female
  Weight: 45 kg

DRUGS (5)
  1. RITUXAN [Suspect]
     Indication: NON-HODGKIN'S LYMPHOMA
     Dosage: 600 MG, QD
     Dates: start: 20070307
  2. DOXORUBICIN HCL [Concomitant]
     Indication: NON-HODGKIN'S LYMPHOMA
     Dosage: 50 MG, UNK
     Route: 042
     Dates: start: 20070216
  3. CYCLOPHOSPHAMIDE [Concomitant]
     Indication: NON-HODGKIN'S LYMPHOMA
     Dosage: 750 MG, UNK
     Route: 042
     Dates: start: 20070216
  4. VINCRISTINE [Concomitant]
     Indication: NON-HODGKIN'S LYMPHOMA
     Dosage: 1.4 MG, UNK
     Dates: start: 20070216
  5. METHYLPREDNISOLONE 16MG TAB [Concomitant]
     Indication: NON-HODGKIN'S LYMPHOMA
     Dosage: 125 MG, UNK
     Route: 042
     Dates: start: 20070216

REACTIONS (1)
  - DEMYELINATING POLYNEUROPATHY [None]
